FAERS Safety Report 10086147 (Version 1)
Quarter: 2014Q2

REPORT INFORMATION
  Report Type: Report from Study
  Country: FR (occurrence: FR)
  Receive Date: 20140418
  Receipt Date: 20140418
  Transmission Date: 20141212
  Serious: Yes (Other)
  Sender: FDA-Public Use
  Company Number: FR-CELGENEUS-056-21880-14041460

PATIENT
  Age: 69 Year
  Sex: Male

DRUGS (28)
  1. REVLIMID [Suspect]
     Indication: PLASMA CELL MYELOMA
     Route: 048
     Dates: start: 20101209, end: 20101222
  2. REVLIMID [Suspect]
     Dosage: 5 MILLIGRAM
     Route: 048
     Dates: start: 201103, end: 201107
  3. REVLIMID [Suspect]
     Route: 048
     Dates: start: 20110809, end: 20110830
  4. REVLIMID [Suspect]
     Route: 048
     Dates: start: 20111024
  5. REVLIMID [Suspect]
     Route: 048
     Dates: start: 20111227
  6. REVLIMID [Suspect]
     Route: 048
     Dates: start: 20120131
  7. REVLIMID [Suspect]
     Dosage: 5 MILLIGRAM
     Route: 048
     Dates: start: 20120301
  8. MELPHALAN [Suspect]
     Indication: PLASMA CELL MYELOMA
     Route: 065
     Dates: start: 20110217
  9. DEXAMETHASONE [Suspect]
     Indication: PLASMA CELL MYELOMA
     Route: 065
  10. DEXAMETHASONE [Suspect]
     Route: 065
     Dates: start: 20101209
  11. DEXAMETHASONE [Suspect]
     Route: 065
     Dates: end: 20101221
  12. DEXAMETHASONE [Suspect]
     Route: 065
     Dates: start: 20110104
  13. DEXAMETHASONE [Suspect]
     Route: 065
     Dates: start: 201103, end: 201107
  14. DEXAMETHASONE [Suspect]
     Route: 065
     Dates: start: 20110809, end: 20110830
  15. DEXAMETHASONE [Suspect]
     Route: 065
     Dates: start: 20111024
  16. DEXAMETHASONE [Suspect]
     Route: 065
     Dates: start: 20111227
  17. VELCADE [Suspect]
     Indication: PLASMA CELL MYELOMA
     Route: 065
  18. VELCADE [Suspect]
     Route: 065
     Dates: start: 20101209
  19. VELCADE [Suspect]
     Route: 065
     Dates: end: 20101222
  20. VELCADE [Suspect]
     Route: 065
     Dates: start: 20110104
  21. VELCADE [Suspect]
     Route: 065
     Dates: start: 201103, end: 201107
  22. VELCADE [Suspect]
     Route: 065
     Dates: start: 20110809, end: 20110830
  23. VELCADE [Suspect]
     Route: 065
     Dates: start: 20111024
  24. VELCADE [Suspect]
     Route: 065
     Dates: start: 20111227
  25. POLARAMINE [Concomitant]
     Indication: PRODUCT USED FOR UNKNOWN INDICATION
     Route: 065
  26. ADRIAMYCIN [Concomitant]
     Indication: PLASMA CELL MYELOMA
     Route: 065
     Dates: start: 20110127
  27. AREDIA [Concomitant]
     Indication: PLASMA CELL MYELOMA
     Route: 065
     Dates: start: 20101206
  28. PREDNISOLONE [Concomitant]
     Indication: PLASMA CELL MYELOMA
     Route: 065
     Dates: start: 20110127

REACTIONS (1)
  - B-cell lymphoma [Not Recovered/Not Resolved]
